FAERS Safety Report 19916871 (Version 1)
Quarter: 2021Q4

REPORT INFORMATION
  Report Type: Spontaneous
  Country: US (occurrence: US)
  Receive Date: 20211004
  Receipt Date: 20211004
  Transmission Date: 20220303
  Serious: No
  Sender: FDA-Public Use
  Company Number: None

PATIENT
  Sex: Male

DRUGS (1)
  1. STELARA [Suspect]
     Active Substance: USTEKINUMAB
     Indication: Psoriasis
     Dosage: OTHER FREQUENCY:EVERY 12 WEEKS;
     Route: 058
     Dates: start: 20210903

REACTIONS (4)
  - Tremor [None]
  - Accidental exposure to product [None]
  - Incorrect dose administered by device [None]
  - Product dose omission in error [None]
